FAERS Safety Report 18762522 (Version 1)
Quarter: 2021Q1

REPORT INFORMATION
  Report Type: Spontaneous
  Country: US (occurrence: US)
  Receive Date: 20210120
  Receipt Date: 20210120
  Transmission Date: 20210419
  Serious: Yes (Death)
  Sender: FDA-Public Use
  Company Number: US-PERRIGO-21US000716

PATIENT
  Age: 70 Year
  Sex: Male

DRUGS (5)
  1. CITALOPRAM [Suspect]
     Active Substance: CITALOPRAM HYDROBROMIDE
     Indication: SUSPECTED SUICIDE
     Dosage: UNKNOWN, UNKNOWN
     Route: 048
  2. LOPERAMIDE HYDROCHLORIDE. [Suspect]
     Active Substance: LOPERAMIDE HYDROCHLORIDE
     Indication: SUSPECTED SUICIDE
     Dosage: UNKNOWN, UNKNOWN
     Route: 048
  3. ALLERGY [Suspect]
     Active Substance: UNSPECIFIED INGREDIENT
     Indication: SUSPECTED SUICIDE
     Dosage: UNKNOWN, UNKNOWN
     Route: 048
  4. RISPERIDONE. [Suspect]
     Active Substance: RISPERIDONE
     Indication: SUSPECTED SUICIDE
     Dosage: UNKNOWN, UNKNOWN
     Route: 048
  5. QUETIAPINE. [Suspect]
     Active Substance: QUETIAPINE
     Indication: SUSPECTED SUICIDE
     Dosage: UNKNOWN, UNKNOWN
     Route: 048

REACTIONS (1)
  - Exposure to toxic agent [Fatal]
